FAERS Safety Report 14318049 (Version 2)
Quarter: 2018Q1

REPORT INFORMATION
  Report Type: Spontaneous
  Country: JP (occurrence: JP)
  Receive Date: 20171222
  Receipt Date: 20180116
  Transmission Date: 20180509
  Serious: Yes (Hospitalization)
  Sender: FDA-Public Use
  Company Number: PHHY2017JP007037

PATIENT
  Age: 96 Year
  Sex: Female

DRUGS (7)
  1. RIVASTACH [Suspect]
     Active Substance: RIVASTIGMINE
     Dosage: 9 MG, QD
     Route: 062
     Dates: end: 20160914
  2. CLOPIDOGREL [Concomitant]
     Active Substance: CLOPIDOGREL BISULFATE
     Indication: CEREBRAL INFARCTION
     Dosage: 75 MG, QD
     Route: 048
     Dates: start: 20160802, end: 20160804
  3. BFLUID [Concomitant]
     Active Substance: AMINO ACIDS\DEXTROSE\ELECTROLYTES NOS\VITAMINS
     Indication: NUTRITIONAL SUPPLEMENTATION
     Dosage: 1000 ML, QD
     Route: 041
     Dates: start: 20160805, end: 20160829
  4. RIVASTACH [Suspect]
     Active Substance: RIVASTIGMINE
     Dosage: 4.6 MG, QD
     Route: 062
     Dates: start: 2016
  5. HEPARIN SODIUM. [Concomitant]
     Active Substance: HEPARIN SODIUM
     Indication: CEREBRAL INFARCTION
     Dosage: UNK
     Route: 042
     Dates: start: 20160802, end: 20160813
  6. RIVASTACH [Suspect]
     Active Substance: RIVASTIGMINE
     Indication: DEMENTIA ALZHEIMER^S TYPE
     Dosage: 9 MG, QD
     Route: 062
     Dates: start: 20160812
  7. WARFARIN POTASSIUM [Concomitant]
     Active Substance: WARFARIN POTASSIUM
     Indication: PRODUCT USED FOR UNKNOWN INDICATION
     Dosage: 3 MG, QD
     Route: 048
     Dates: start: 20160809, end: 20160815

REACTIONS (5)
  - Renal failure [Recovered/Resolved]
  - Hyperkalaemia [Recovered/Resolved]
  - Bradycardia [Recovered/Resolved]
  - Dehydration [Recovered/Resolved]
  - Atrioventricular block complete [Recovered/Resolved]

NARRATIVE: CASE EVENT DATE: 20160909
